FAERS Safety Report 4612239-0 (Version None)
Quarter: 2005Q1

REPORT INFORMATION
  Report Type: 
  Country: None (occurrence: None)
  Receive Date: 20050316
  Receipt Date: 20050301
  Transmission Date: 20050727
  Serious: Yes (Death)
  Sender: FDA-Public Use
  Company Number: US_0503113781

PATIENT
  Age: 40 Year

DRUGS (6)
  1. ZYPREXA [Suspect]
     Route: 048
     Dates: end: 20030101
  2. PROPOXYPHENE HCL [Concomitant]
  3. COCAINE [Concomitant]
  4. NORPROPOXYPHENE [Concomitant]
  5. BENZOYLEGONINE                 (COCAINE METABOLITE) [Concomitant]
  6. OLANZAPINE [Concomitant]

REACTIONS (3)
  - CARDIO-RESPIRATORY ARREST [None]
  - COMPLETED SUICIDE [None]
  - INTENTIONAL MISUSE [None]
